FAERS Safety Report 6773612-8 (Version None)
Quarter: 2010Q2

REPORT INFORMATION
  Report Type: 
  Country: None (occurrence: None)
  Receive Date: 20100614
  Receipt Date: 20100601
  Transmission Date: 20101027
  Serious: Yes (Hospitalization)
  Sender: FDA-Public Use
  Company Number: B0660132A

PATIENT
  Age: 60 Year
  Sex: Female

DRUGS (10)
  1. DIGOXIN [Suspect]
  2. ETODOLAC [Suspect]
     Indication: BACK PAIN
  3. ROSIGLITAZONE MALEATE [Concomitant]
  4. METFORMIN HYDROCHLORIDE [Concomitant]
  5. LEVOTHYROXINE SODIUM [Concomitant]
  6. GABAPENTIN [Concomitant]
  7. CLONIDINE [Concomitant]
  8. ENALAPRIL MALEATE [Concomitant]
  9. FRUSEMIDE [Concomitant]
  10. DEXTROPROPOXYPHENE [Concomitant]

REACTIONS (7)
  - ASTHENIA [None]
  - BRADYCARDIA [None]
  - DIZZINESS [None]
  - HYPERKALAEMIA [None]
  - MUCOUS MEMBRANE DISORDER [None]
  - RENAL FAILURE ACUTE [None]
  - THERAPEUTIC AGENT TOXICITY [None]
